FAERS Safety Report 7015471-4 (Version None)
Quarter: 2010Q3

REPORT INFORMATION
  Report Type: 
  Country: None (occurrence: None)
  Receive Date: 20100923
  Receipt Date: 20100915
  Transmission Date: 20110219
  Serious: Yes (Other)
  Sender: FDA-Public Use
  Company Number: 2010SP049478

PATIENT
  Age: 58 Year
  Sex: Male

DRUGS (3)
  1. RIBAVIRIN [Suspect]
     Indication: HEPATITIS C
  2. INTERFERON [Suspect]
     Indication: HEPATITIS C
  3. INSULIN [Concomitant]

REACTIONS (7)
  - DIABETES MELLITUS [None]
  - DISEASE RECURRENCE [None]
  - HEPATIC CIRRHOSIS [None]
  - HEPATITIS C [None]
  - LIVER TRANSPLANT [None]
  - NEPHRITIC SYNDROME [None]
  - RENAL IMPAIRMENT [None]
